FAERS Safety Report 9914332 (Version 1)
Quarter: 2014Q1

REPORT INFORMATION
  Report Type: Spontaneous
  Country: JP (occurrence: None)
  Receive Date: 20140218
  Receipt Date: 20140218
  Transmission Date: 20141002
  Serious: Yes (Other)
  Sender: FDA-Public Use
  Company Number: 7269345

PATIENT
  Sex: Female

DRUGS (1)
  1. LEVOTHYROXINE [Suspect]
     Indication: HYPOTHYROIDISM
     Dosage: PRODUCT TAKEN BY MOTHER

REACTIONS (15)
  - Maternal drugs affecting foetus [None]
  - Goitre [None]
  - Tachycardia foetal [None]
  - Foetal cardiac disorder [None]
  - Cardiac failure [None]
  - Neonatal tachycardia [None]
  - Congenital hyperthyroidism [None]
  - Growth retardation [None]
  - Motor developmental delay [None]
  - Bone development abnormal [None]
  - Pericardial effusion [None]
  - Cardiomegaly [None]
  - Premature rupture of membranes [None]
  - Premature baby [None]
  - Caesarean section [None]
